FAERS Safety Report 4499080-7 (Version None)
Quarter: 2004Q4

REPORT INFORMATION
  Report Type: 
  Country: None (occurrence: None)
  Receive Date: 20041111
  Receipt Date: 20041103
  Transmission Date: 20050328
  Serious: Yes (Death, Hospitalization)
  Sender: FDA-Public Use
  Company Number: US-JNJFOC-20040908242

PATIENT
  Age: 44 Year
  Sex: Male

DRUGS (11)
  1. DURAGESIC [Suspect]
     Route: 049
  2. RISPERIDONE [Suspect]
     Indication: DRUG USE FOR UNKNOWN INDICATION
     Route: 049
  3. CLONAZEPAM [Suspect]
     Indication: DRUG USE FOR UNKNOWN INDICATION
     Route: 049
  4. LAMIVUDINE [Concomitant]
  5. PROGESTIN INJ [Concomitant]
  6. ANTICONVULSANT [Concomitant]
  7. ALBUTEROL [Concomitant]
  8. ANGIOTENSIN RECEPTOR ANTAGONIST [Concomitant]
  9. ZOLPIDEM [Concomitant]
  10. CITALOPRAM [Concomitant]
  11. VALDECOXIB [Concomitant]

REACTIONS (8)
  - BLOOD CREATINE PHOSPHOKINASE INCREASED [None]
  - BLOOD CREATININE INCREASED [None]
  - COMA [None]
  - DRUG ABUSER [None]
  - INTENTIONAL MISUSE [None]
  - KUSSMAUL RESPIRATION [None]
  - MULTIPLE DRUG OVERDOSE INTENTIONAL [None]
  - RESPIRATORY DEPRESSION [None]
